FAERS Safety Report 8076609-3 (Version None)
Quarter: 2012Q1

REPORT INFORMATION
  Report Type: 
  Country: None (occurrence: None)
  Receive Date: 20120127
  Receipt Date: 20120123
  Transmission Date: 20120608
  Serious: Yes (Hospitalization)
  Sender: FDA-Public Use
  Company Number: US-B.I. PHARMACEUTICALS,INC./RIDGEFIELD-2012-BP-00506BP

PATIENT
  Sex: Male
  Weight: 76.2 kg

DRUGS (14)
  1. VASOTEC [Concomitant]
     Indication: HYPERTENSION
     Dosage: 40 MG
  2. MAGNESIUM [Concomitant]
     Indication: VITAMIN SUPPLEMENTATION
  3. IMDUR [Concomitant]
     Indication: CARDIAC FAILURE CONGESTIVE
  4. ZOCOR [Concomitant]
     Indication: CORONARY ARTERY DISEASE
     Dosage: 40 MG
  5. ZOCOR [Concomitant]
     Indication: BLOOD CHOLESTEROL INCREASED
  6. METFORMIN HCL [Concomitant]
     Indication: DIABETES MELLITUS
     Dosage: 1000 MG
  7. HYTRIN [Concomitant]
     Indication: HYPERTENSION
  8. GLIPIZIDE [Concomitant]
     Indication: DIABETES MELLITUS
     Dosage: 10 MG
  9. LASIX [Concomitant]
     Indication: CARDIAC FAILURE CONGESTIVE
  10. ZAROXOLYN [Concomitant]
     Indication: CARDIAC FAILURE CONGESTIVE
  11. XELODA [Concomitant]
     Indication: LUNG NEOPLASM MALIGNANT
  12. TOPROL-XL [Concomitant]
     Indication: HYPERTENSION
  13. PRADAXA [Suspect]
     Indication: ATRIAL FIBRILLATION
     Dosage: 300 MG
     Dates: start: 20110110, end: 20111214
  14. POTASSIUM CHLORIDE [Concomitant]
     Indication: VITAMIN SUPPLEMENTATION

REACTIONS (5)
  - HAEMOTHORAX [None]
  - CONTUSION [None]
  - RIB FRACTURE [None]
  - FALL [None]
  - HAEMATOMA [None]
